FAERS Safety Report 21459974 (Version 2)
Quarter: 2022Q4

REPORT INFORMATION
  Report Type: Spontaneous
  Country: BR (occurrence: None)
  Receive Date: 20221014
  Receipt Date: 20221122
  Transmission Date: 20230113
  Serious: Yes (Hospitalization)
  Sender: FDA-Public Use
  Company Number: BR-Merck Healthcare KGaA-9357301

PATIENT
  Age: 91 Year
  Sex: Female

DRUGS (1)
  1. GLIFAGE [Suspect]
     Active Substance: METFORMIN HYDROCHLORIDE
     Indication: Type 2 diabetes mellitus
     Route: 048
     Dates: end: 20221005

REACTIONS (9)
  - Dysphagia [Recovered/Resolved]
  - Memory impairment [Recovered/Resolved]
  - Feeding disorder [Recovered/Resolved]
  - Mastication disorder [Recovered/Resolved]
  - Mobility decreased [Recovered/Resolved]
  - Dysarthria [Recovered/Resolved]
  - Weight decreased [Not Recovered/Not Resolved]
  - Blood glucose increased [Unknown]
  - Intentional product misuse [Recovered/Resolved]

NARRATIVE: CASE EVENT DATE: 20220906
